FAERS Safety Report 22156921 (Version 1)
Quarter: 2023Q1

REPORT INFORMATION
  Report Type: Spontaneous
  Country: US (occurrence: None)
  Receive Date: 20230330
  Receipt Date: 20230330
  Transmission Date: 20230417
  Serious: Yes (Disabling, Other)
  Sender: FDA-Public Use
  Company Number: None

PATIENT
  Age: 77 Year
  Sex: Male
  Weight: 88.2 kg

DRUGS (13)
  1. BUPRENORPHINE [Suspect]
     Active Substance: BUPRENORPHINE
     Indication: Procedural pain
     Dosage: FREQUENCY : EVERY 8 HOURS;?
     Route: 060
  2. XANAX [Concomitant]
     Active Substance: ALPRAZOLAM
  3. NP THYROID [Concomitant]
  4. GABAPENTIN [Concomitant]
     Active Substance: GABAPENTIN
  5. ISOSORBIDE MONONITRATE [Concomitant]
  6. VENLAFAXINE [Concomitant]
     Active Substance: VENLAFAXINE HYDROCHLORIDE
  7. Garden of Life Multiple for men over 50 [Concomitant]
  8. BERBERINE [Concomitant]
     Active Substance: BERBERINE
  9. ALPHA LIPOIC ACID [Concomitant]
     Active Substance: .ALPHA.-LIPOIC ACID
  10. Glycine Propionyl L-Carnitine [Concomitant]
  11. ACETYLCYSTEINE [Concomitant]
     Active Substance: ACETYLCYSTEINE
  12. Multi-Collagen Protein [Concomitant]
  13. WHEY [Concomitant]
     Active Substance: WHEY

REACTIONS (4)
  - Tooth fracture [None]
  - Dental caries [None]
  - Emotional disorder [None]
  - Economic problem [None]

NARRATIVE: CASE EVENT DATE: 20221005
